FAERS Safety Report 5157462-4 (Version None)
Quarter: 2006Q4

REPORT INFORMATION
  Report Type: 
  Country: None (occurrence: None)
  Receive Date: 20061127
  Receipt Date: 20060815
  Transmission Date: 20070319
  Serious: Yes (Hospitalization)
  Sender: FDA-Public Use
  Company Number: TR-AVENTIS-200621804GDDC

PATIENT
  Age: 27 Year
  Sex: Female
  Weight: 70 kg

DRUGS (4)
  1. KETEK [Suspect]
     Indication: ACUTE SINUSITIS
     Dosage: DOSE: UNK
     Route: 048
     Dates: start: 20060706, end: 20060715
  2. ADEPIRON [Concomitant]
     Indication: PYREXIA
     Route: 048
     Dates: start: 20060724, end: 20060728
  3. CEFUROXIME [Concomitant]
     Indication: SINUSITIS
     Route: 048
     Dates: start: 20060722, end: 20060724
  4. NOVOSEF [Concomitant]
     Indication: SINUSITIS
     Route: 030
     Dates: start: 20060724, end: 20060726

REACTIONS (3)
  - FATIGUE [None]
  - HEPATITIS TOXIC [None]
  - PYREXIA [None]
